FAERS Safety Report 16491510 (Version 1)
Quarter: 2019Q3

REPORT INFORMATION
  Report Type: Spontaneous
  Country: US (occurrence: US)
  Receive Date: 20190627
  Receipt Date: 20190627
  Transmission Date: 20191004
  Serious: Yes (Life-Threatening, Hospitalization, Disabling, Other)
  Sender: FDA-Public Use
  Company Number: None

PATIENT
  Age: 54 Year
  Sex: Female
  Weight: 99 kg

DRUGS (1)
  1. JARDIANCE [Suspect]
     Active Substance: EMPAGLIFLOZIN
     Indication: DIABETES MELLITUS

REACTIONS (6)
  - Thrombosis [None]
  - Peripheral circulatory failure [None]
  - Dehydration [None]
  - Foot amputation [None]
  - Renal infarct [None]
  - Soft tissue disorder [None]

NARRATIVE: CASE EVENT DATE: 20170515
